FAERS Safety Report 8758739 (Version 1)
Quarter: 2012Q4

REPORT INFORMATION
  Report Type: Spontaneous
  Country: US (occurrence: None)
  Receive Date: 20120828
  Receipt Date: 20120828
  Transmission Date: 20130627
  Serious: Yes (Hospitalization)
  Sender: FDA-Public Use
  Company Number: None

PATIENT
  Age: 55 Year
  Sex: Male
  Weight: 100 kg

DRUGS (1)
  1. AZATHIOPRINE [Suspect]
     Indication: RHEUMATOID ARTHRITIS
     Route: 048
     Dates: start: 20120613, end: 20120616

REACTIONS (7)
  - Diarrhoea [None]
  - Nausea [None]
  - Vomiting [None]
  - Hepatic enzyme increased [None]
  - Dysgeusia [None]
  - Renal failure [None]
  - Hypophagia [None]
